FAERS Safety Report 6867405-0 (Version None)
Quarter: 2010Q3

REPORT INFORMATION
  Report Type: 
  Country: None (occurrence: None)
  Receive Date: 20100722
  Receipt Date: 20100719
  Transmission Date: 20110219
  Serious: Yes (Hospitalization)
  Sender: FDA-Public Use
  Company Number: FR-BRISTOL-MYERS SQUIBB COMPANY-15200488

PATIENT
  Age: 75 Year
  Sex: Male
  Weight: 72 kg

DRUGS (8)
  1. PRAVIGARD PAC (COPACKAGED) [Suspect]
     Dosage: 1DF=40MG+81MG
     Route: 048
     Dates: end: 20080229
  2. CORDARONE [Suspect]
     Indication: ARRHYTHMIA
     Route: 048
     Dates: end: 20080229
  3. NEBIVOLOL HCL [Suspect]
     Indication: HYPERTENSION
     Route: 048
     Dates: end: 20080229
  4. MICARDIS HCT [Concomitant]
     Dates: start: 20060801
  5. PLAVIX [Concomitant]
  6. EZETROL [Concomitant]
  7. TAMSULOSIN HCL [Concomitant]
  8. DIACEREIN [Concomitant]

REACTIONS (2)
  - ACUTE RESPIRATORY DISTRESS SYNDROME [None]
  - PNEUMONIA [None]
